FAERS Safety Report 9322435 (Version 3)
Quarter: 2013Q3

REPORT INFORMATION
  Report Type: Report from Study
  Country: CA (occurrence: CA)
  Receive Date: 20130531
  Receipt Date: 20130814
  Transmission Date: 20140515
  Serious: Yes (Death, Hospitalization)
  Sender: FDA-Public Use
  Company Number: CA-INCYTE CORPORATION-2013IN001084

PATIENT
  Age: 57 Year
  Sex: Female

DRUGS (2)
  1. JAKAVI [Suspect]
     Indication: MYELOFIBROSIS
     Dosage: 5 MG, BID
     Route: 048
     Dates: start: 20130419
  2. JAKAVI [Suspect]
     Dosage: UNK
     Route: 048

REACTIONS (4)
  - Death [Fatal]
  - Mouth ulceration [Unknown]
  - Oesophageal candidiasis [Unknown]
  - Oral disorder [Not Recovered/Not Resolved]
